FAERS Safety Report 13193419 (Version 4)
Quarter: 2017Q2

REPORT INFORMATION
  Report Type: Report from Study
  Country: US (occurrence: US)
  Receive Date: 20170207
  Receipt Date: 20170628
  Transmission Date: 20170830
  Serious: Yes (Hospitalization, Other)
  Sender: FDA-Public Use
  Company Number: US-GILEAD-2017-0257023

PATIENT
  Age: 38 Year
  Sex: Female

DRUGS (4)
  1. AMBRISENTAN [Suspect]
     Active Substance: AMBRISENTAN
     Indication: PRODUCT USED FOR UNKNOWN INDICATION
     Dosage: 10 MG, QD
     Route: 065
     Dates: start: 20100610
  2. ADCIRCA [Concomitant]
     Active Substance: TADALAFIL
  3. DILTIAZEM. [Concomitant]
     Active Substance: DILTIAZEM
  4. WARFARIN [Concomitant]
     Active Substance: WARFARIN

REACTIONS (14)
  - White blood cell count abnormal [Unknown]
  - Rectal discharge [Not Recovered/Not Resolved]
  - Malnutrition [Unknown]
  - Wound haemorrhage [Unknown]
  - Lethargy [Unknown]
  - Back injury [Unknown]
  - Fall [Unknown]
  - Hypotension [Not Recovered/Not Resolved]
  - Anal cancer [Unknown]
  - Wound [Unknown]
  - Sepsis [Unknown]
  - Diarrhoea [Unknown]
  - Bladder spasm [Not Recovered/Not Resolved]
  - Dehydration [Unknown]
